FAERS Safety Report 24105196 (Version 1)
Quarter: 2024Q3

REPORT INFORMATION
  Report Type: Report from Study
  Country: US (occurrence: None)
  Receive Date: 20240717
  Receipt Date: 20240717
  Transmission Date: 20241016
  Serious: Yes (Hospitalization)
  Sender: ASTRAZENECA
  Company Number: 2024A157705

PATIENT
  Sex: Female
  Weight: 79 kg

DRUGS (1)
  1. TRUQAP [Suspect]
     Active Substance: CAPIVASERTIB
     Indication: Breast cancer female
     Route: 048
     Dates: start: 20240107

REACTIONS (3)
  - Dehydration [Unknown]
  - Infection [Unknown]
  - Product dose omission issue [Unknown]
